FAERS Safety Report 7070038-7 (Version None)
Quarter: 2010Q4

REPORT INFORMATION
  Report Type: 
  Country: None (occurrence: None)
  Receive Date: 20101028
  Receipt Date: 20100825
  Transmission Date: 20110411
  Serious: No
  Sender: FDA-Public Use
  Company Number: US-WYE-H17128410

PATIENT
  Sex: Female

DRUGS (1)
  1. EFFEXOR [Suspect]
     Dosage: 25 MG ONCE 3 TIMES A WEEK AND CUTS EFFEXOR 25 MG IN HALF AND TAKES A HALF TABLET THE OTHER 4 DAYS

REACTIONS (2)
  - SLUGGISHNESS [None]
  - UNEVALUABLE EVENT [None]
